FAERS Safety Report 13089189 (Version 1)
Quarter: 2017Q1

REPORT INFORMATION
  Report Type: Spontaneous
  Country: US (occurrence: US)
  Receive Date: 20170105
  Receipt Date: 20170105
  Transmission Date: 20170428
  Serious: Yes (Hospitalization, Other)
  Sender: FDA-Public Use
  Company Number: US-SAOL THERAPEUTICS-2016SAO00757

PATIENT
  Age: 46 Year
  Sex: Male
  Weight: 60.32 kg

DRUGS (14)
  1. CLONIDINE. [Suspect]
     Active Substance: CLONIDINE
     Dosage: UNK
     Route: 037
  2. VALIUM [Concomitant]
     Active Substance: DIAZEPAM
     Dosage: 1 TABLETS, 3X/DAY
  3. BACLOFEN. [Suspect]
     Active Substance: BACLOFEN
     Indication: MUSCULOSKELETAL STIFFNESS
  4. BACLOFEN. [Suspect]
     Active Substance: BACLOFEN
     Indication: MUSCLE SPASMS
  5. BACLOFEN. [Suspect]
     Active Substance: BACLOFEN
     Indication: MUSCULOSKELETAL STIFFNESS
  6. OXYCODONE [Concomitant]
     Active Substance: OXYCODONE
     Dosage: 1 TABLETS, AS NEEDED
  7. BACLOFEN. [Suspect]
     Active Substance: BACLOFEN
     Indication: MUSCLE SPASMS
  8. BUPIVACAINE. [Suspect]
     Active Substance: BUPIVACAINE
     Dosage: UNK
     Route: 037
  9. BACLOFEN. [Suspect]
     Active Substance: BACLOFEN
     Indication: PAIN
     Dosage: UNK
     Dates: start: 20150916, end: 2016
  10. OMEPRAZOLE. [Concomitant]
     Active Substance: OMEPRAZOLE
     Dosage: 1 CAPSULES, 1X/DAY
  11. SOMA [Concomitant]
     Active Substance: CARISOPRODOL
     Dosage: 1 TABLETS, 3X/DAY
  12. NEURONTIN [Concomitant]
     Active Substance: GABAPENTIN
     Dosage: 1 TABLETS, 3X/DAY
  13. BACLOFEN. [Suspect]
     Active Substance: BACLOFEN
     Indication: PAIN
     Dosage: 13.2 ?G, \DAY
     Route: 037
     Dates: start: 20121008, end: 20150916
  14. FENTANYL. [Suspect]
     Active Substance: FENTANYL
     Dosage: UNK
     Route: 037

REACTIONS (14)
  - Dysphagia [Unknown]
  - Dizziness [Unknown]
  - Balance disorder [Unknown]
  - Post laminectomy syndrome [Unknown]
  - Skin ulcer [Unknown]
  - Spinal osteoarthritis [Unknown]
  - Insomnia [Unknown]
  - Overdose [Recovered/Resolved]
  - Cellulitis [Recovering/Resolving]
  - Off label use [Recovered/Resolved]
  - Pain [Unknown]
  - Dyspnoea [Unknown]
  - Micturition urgency [Unknown]
  - Pollakiuria [Unknown]

NARRATIVE: CASE EVENT DATE: 20040120
